FAERS Safety Report 20955617 (Version 1)
Quarter: 2022Q2

REPORT INFORMATION
  Report Type: Spontaneous
  Country: CN (occurrence: CN)
  Receive Date: 20220614
  Receipt Date: 20220614
  Transmission Date: 20220720
  Serious: Yes (Other)
  Sender: FDA-Public Use
  Company Number: None

PATIENT
  Age: 46 Year
  Sex: Female
  Weight: 55 kg

DRUGS (9)
  1. CYCLOPHOSPHAMIDE [Suspect]
     Active Substance: CYCLOPHOSPHAMIDE
     Indication: Breast cancer female
     Dosage: 948.000000 MG ONCE DAILY, CYCLOPHOSPHAMIDE DILUTED WITH SODIUM CHLORIDE
     Route: 041
     Dates: start: 20220602, end: 20220602
  2. SODIUM CHLORIDE [Suspect]
     Active Substance: SODIUM CHLORIDE
     Indication: Medication dilution
     Dosage: 100.000000MG ONCE DAILY, CYCLOPHOSPHAMIDE DILUTED WITH SODIUM CHLORIDE
     Route: 041
     Dates: start: 20220602, end: 20220602
  3. DOXORUBICIN HYDROCHLORIDE [Suspect]
     Active Substance: DOXORUBICIN HYDROCHLORIDE
     Indication: Breast cancer female
     Dosage: 94.800000 MG ONCE DAILY, DOXORUBICIN HYDROCHLORIDE WAS DILUTED WITH STERILE WATER FOR INJECTION
     Route: 041
     Dates: start: 20220602, end: 20220602
  4. STERILE WATER [Suspect]
     Active Substance: WATER
     Indication: Medication dilution
     Dosage: 47.400000 ML ONCE DAILY, DOXORUBICIN HYDROCHLORIDE WAS DILUTED WITH STERILE WATER FOR INJECTION
     Route: 041
     Dates: start: 20220602, end: 20220602
  5. DEXAMETHASONE SODIUM PHOSPHATE [Concomitant]
     Active Substance: DEXAMETHASONE SODIUM PHOSPHATE
     Indication: Vomiting
     Dosage: 10.0000 MG ONCE DAILY
     Route: 042
     Dates: start: 20220602, end: 20220602
  6. PALONOSETRON HYDROCHLORIDE [Concomitant]
     Active Substance: PALONOSETRON HYDROCHLORIDE
     Indication: Vomiting
     Dosage: 0.250000 MG ONCE DAILY
     Route: 042
     Dates: start: 20220602, end: 20220602
  7. APREPITANT [Concomitant]
     Active Substance: APREPITANT
     Indication: Vomiting
     Dosage: 125.000 MILLIGRAM, QD
     Route: 048
     Dates: start: 20220602, end: 20220602
  8. APREPITANT [Concomitant]
     Active Substance: APREPITANT
     Dosage: 80.000000 MG ONCE DAILY
     Route: 048
     Dates: start: 20220603, end: 20220604
  9. APREPITANT [Concomitant]
     Active Substance: APREPITANT
     Dosage: 80 MG, QD
     Route: 048

REACTIONS (5)
  - Dizziness [Recovering/Resolving]
  - Palpitations [Recovering/Resolving]
  - Dyspnoea [Recovering/Resolving]
  - Nausea [Recovering/Resolving]
  - Vomiting [Recovering/Resolving]

NARRATIVE: CASE EVENT DATE: 20220605
